FAERS Safety Report 8490613-2 (Version None)
Quarter: 2012Q3

REPORT INFORMATION
  Report Type: 
  Country: None (occurrence: None)
  Receive Date: 20120705
  Receipt Date: 20120627
  Transmission Date: 20120928
  Serious: Yes (Hospitalization)
  Sender: FDA-Public Use
  Company Number: AR-ABBOTT-12P-007-0943434-00

PATIENT
  Sex: Male
  Weight: 52.8 kg

DRUGS (4)
  1. KALETRA [Suspect]
     Dates: start: 20120614
  2. KALETRA [Suspect]
     Indication: HIV INFECTION
     Dosage: TOTAL DAILY DOSE 800/200
     Route: 048
     Dates: start: 20120523, end: 20120604
  3. AZT/3TC [Concomitant]
     Indication: HIV INFECTION
     Dosage: 600/300
     Route: 048
     Dates: start: 20120523, end: 20120604
  4. DAPSONE [Concomitant]
     Indication: PROPHYLAXIS
     Route: 048
     Dates: start: 20110511, end: 20120604

REACTIONS (1)
  - PYREXIA [None]
